FAERS Safety Report 8933698 (Version 1)
Quarter: 2012Q4

REPORT INFORMATION
  Report Type: 
  Country: IT (occurrence: IT)
  Receive Date: 20121128
  Receipt Date: 20121128
  Transmission Date: 20130627
  Serious: Yes (Other)
  Sender: FDA-Public Use
  Company Number: IT-B.I. PHARMACEUTICALS,INC./RIDGEFIELD-2012-BI-01263BY

PATIENT
  Age: 36 Year
  Sex: Female

DRUGS (14)
  1. TELMISARTAN [Suspect]
     Dosage: 20 mg
     Route: 065
  2. CLOPIDOGREL [Suspect]
     Dosage: 75 mg
     Route: 065
  3. CLOPIDOGREL [Suspect]
     Dosage: 75 mg
     Route: 065
  4. ACETYLSALICYLIC ACID [Suspect]
     Dosage: 75 mg
     Route: 065
  5. ALFAMETILDOPA [Suspect]
     Dosage: 1500 mg
     Route: 065
  6. METOPROLOL [Concomitant]
     Route: 065
  7. ROSUVASTATIN [Concomitant]
     Route: 065
  8. THIOPENTAL SODIUM [Concomitant]
     Route: 065
  9. REMIFENTANIL [Concomitant]
     Route: 065
  10. ROCURONIUM [Concomitant]
     Route: 065
  11. OXYGEN [Concomitant]
     Route: 065
  12. SEVOFLURANE [Concomitant]
     Route: 065
  13. MORPHINE [Concomitant]
     Route: 065
  14. UNCODEABLE ^UNCLASSIFIABLE^ [Concomitant]
     Route: 065

REACTIONS (4)
  - Exposure during pregnancy [Unknown]
  - Hypertensive crisis [Unknown]
  - Myocardial ischaemia [Unknown]
  - Uterine hypotonus [Unknown]
